FAERS Safety Report 23912530 (Version 2)
Quarter: 2025Q3

REPORT INFORMATION
  Report Type: Spontaneous
  Country: US (occurrence: US)
  Receive Date: 20240528
  Receipt Date: 20250923
  Transmission Date: 20251020
  Serious: Yes (Other)
  Sender: BEIGENE
  Company Number: US-BEIGENE-BGN-2024-007813

PATIENT
  Age: 83 Year

DRUGS (3)
  1. BRUKINSA [Suspect]
     Active Substance: ZANUBRUTINIB
     Indication: Product used for unknown indication
  2. BRUKINSA [Suspect]
     Active Substance: ZANUBRUTINIB
  3. ALLOPURINOL [Concomitant]
     Active Substance: ALLOPURINOL
     Indication: Product used for unknown indication
     Dosage: UNK, QD

REACTIONS (5)
  - Squamous cell carcinoma of skin [Recovered/Resolved]
  - Skin neoplasm excision [Unknown]
  - Computerised tomogram thorax abnormal [Unknown]
  - Impaired healing [Unknown]
  - Blood urine present [Not Recovered/Not Resolved]
